FAERS Safety Report 14385157 (Version 1)
Quarter: 2018Q1

REPORT INFORMATION
  Report Type: Spontaneous
  Country: US (occurrence: US)
  Receive Date: 20180115
  Receipt Date: 20180115
  Transmission Date: 20180509
  Serious: Yes (Other)
  Sender: FDA-Public Use
  Company Number: US-SA-2016SA236138

PATIENT
  Age: 64 Year
  Sex: Female
  Weight: 81.64 kg

DRUGS (2)
  1. TAXOTERE [Suspect]
     Active Substance: DOCETAXEL
     Indication: BREAST CANCER FEMALE
     Route: 051
     Dates: start: 20100613, end: 20100613
  2. TAXOTERE [Suspect]
     Active Substance: DOCETAXEL
     Indication: BREAST CANCER FEMALE
     Route: 051
     Dates: start: 20100202, end: 20100202

REACTIONS (8)
  - Pain [Unknown]
  - Emotional distress [Unknown]
  - Injury [Unknown]
  - Alopecia [Recovering/Resolving]
  - Anxiety [Unknown]
  - Hair texture abnormal [Unknown]
  - Hair colour changes [Unknown]
  - Impaired quality of life [Unknown]
